FAERS Safety Report 23503705 (Version 3)
Quarter: 2024Q1

REPORT INFORMATION
  Report Type: Report from Study
  Country: DE (occurrence: DE)
  Receive Date: 20240209
  Receipt Date: 20240229
  Transmission Date: 20240409
  Serious: Yes (Death, Hospitalization)
  Sender: FDA-Public Use
  Company Number: DE-ABBVIE-5628726

PATIENT
  Age: 84 Year
  Sex: Male

DRUGS (9)
  1. CARBIDOPA\LEVODOPA [Suspect]
     Active Substance: CARBIDOPA\LEVODOPA
     Indication: Parkinson^s disease
     Dosage: MD: 5.0ML; CRD: 5.5ML/H; CRN: 4.4ML/H; ED: 5.0ML (20MG/ML+5 MG/ML, STRENGTH: 2000 MG+500 MG)
     Route: 050
     Dates: start: 20190213
  2. CARBIDOPA\LEVODOPA [Suspect]
     Active Substance: CARBIDOPA\LEVODOPA
  3. QUETIAPINE [Concomitant]
     Active Substance: QUETIAPINE
     Indication: Product used for unknown indication
     Dosage: FORM STRENGTH: 50 MG
  4. HERBALS [Concomitant]
     Active Substance: HERBALS
     Indication: Product used for unknown indication
     Dosage: TIME INTERVAL: 0.33333333 DAYS: DURATION TEXT: TEMPORARY MEDICATION
  5. HERBALS [Concomitant]
     Active Substance: HERBALS
     Indication: Product used for unknown indication
     Dosage: TIME INTERVAL: 0.33333333 DAYS: DURATION TEXT: TEMPORARY MEDICATION
  6. SODIUM PICOSULFATE [Concomitant]
     Active Substance: SODIUM PICOSULFATE
     Indication: Constipation
  7. PIPAMPERONE HYDROCHLORIDE [Concomitant]
     Active Substance: PIPAMPERONE HYDROCHLORIDE
     Indication: Product used for unknown indication
     Dosage: FORM STRENGTH: 40 MG
  8. RAMIPRIL [Concomitant]
     Active Substance: RAMIPRIL
     Indication: Product used for unknown indication
     Dosage: FORM STRENGTH: 2.5 MG
  9. ARISTO [Concomitant]
     Indication: Pain
     Dosage: FORM STRENGTH: 500 MG, METAMIZOLE-SODIUM-1-WATER?FREQUENCY TEXT: 1X1-3X1 AS REQUIRED BY PAIN

REACTIONS (3)
  - Cough [Fatal]
  - Pyrexia [Fatal]
  - Infection [Fatal]

NARRATIVE: CASE EVENT DATE: 20240117
